FAERS Safety Report 9365376 (Version 3)
Quarter: 2013Q4

REPORT INFORMATION
  Report Type: Report from Study
  Country: JP (occurrence: JP)
  Receive Date: 20130625
  Receipt Date: 20131224
  Transmission Date: 20140711
  Serious: Yes (Disabling, Other)
  Sender: FDA-Public Use
  Company Number: JP-AMGEN-JPNSP2013044055

PATIENT
  Age: 91 Year
  Sex: Female
  Weight: 32 kg

DRUGS (9)
  1. ROMIPLOSTIM - KHK [Suspect]
     Indication: IMMUNE THROMBOCYTOPENIC PURPURA
     Dosage: 1 MUG/KG, QWK
     Route: 058
     Dates: start: 20130124
  2. PREDONINE                          /00016201/ [Concomitant]
     Indication: IMMUNE THROMBOCYTOPENIC PURPURA
     Dosage: 20 MG, UNK
     Route: 048
     Dates: start: 20130109, end: 20130111
  3. PREDONINE                          /00016201/ [Concomitant]
     Dosage: 10 MG, UNK
     Route: 048
     Dates: start: 20130112, end: 20130214
  4. PREDONINE                          /00016201/ [Concomitant]
     Dosage: 7.5 MG, UNK
     Route: 048
     Dates: start: 20130215, end: 20130308
  5. PREDONINE                          /00016201/ [Concomitant]
     Dosage: 5 MG, UNK
     Route: 048
     Dates: start: 20130309
  6. MUCODYNE [Concomitant]
     Indication: BRONCHITIS CHRONIC
     Dosage: UNK
     Route: 048
  7. LYRICA [Concomitant]
     Indication: NEURALGIA
     Dosage: UNK
     Route: 048
  8. TAKEPRON [Concomitant]
     Indication: GASTROOESOPHAGEAL REFLUX DISEASE
     Dosage: UNK
     Route: 048
  9. LECICARBON                         /00739901/ [Concomitant]
     Indication: CONSTIPATION
     Dosage: UNK
     Route: 054

REACTIONS (5)
  - Cerebral infarction [Recovered/Resolved with Sequelae]
  - Pneumonia aspiration [Recovered/Resolved]
  - Pneumonia aspiration [Recovered/Resolved]
  - Pneumonia aspiration [Recovered/Resolved]
  - Pneumonia aspiration [Recovered/Resolved]
